FAERS Safety Report 10072464 (Version 2)
Quarter: 2014Q2

REPORT INFORMATION
  Report Type: Spontaneous
  Country: US (occurrence: None)
  Receive Date: 20140409
  Receipt Date: 20140528
  Transmission Date: 20141212
  Serious: Yes (Other)
  Sender: FDA-Public Use
  Company Number: 2014PL000050

PATIENT
  Age: 40 Year
  Sex: 0
  Weight: 73 kg

DRUGS (5)
  1. LOTRONEX [Suspect]
     Indication: IRRITABLE BOWEL SYNDROME
     Route: 048
     Dates: start: 20131230, end: 201401
  2. LITHIUM (LITHIUM) [Concomitant]
  3. LEVBID (HYOSCYAMINE SULFATE) [Concomitant]
  4. IMODIUM (LOPERAMIDE HYDROCHLORIDE) [Concomitant]
  5. VICODIN (HYDROCODONE BITARTRATE, PARACETAMOL) [Concomitant]

REACTIONS (2)
  - Colitis ischaemic [None]
  - Incorrect dose administered [None]
